FAERS Safety Report 6602602-0 (Version None)
Quarter: 2010Q1

REPORT INFORMATION
  Report Type: 
  Country: None (occurrence: None)
  Receive Date: 20100225
  Receipt Date: 20100217
  Transmission Date: 20100710
  Serious: Yes (Other)
  Sender: FDA-Public Use
  Company Number: US-AMGEN-KDL388695

PATIENT
  Sex: Male
  Weight: 106 kg

DRUGS (8)
  1. NPLATE [Suspect]
     Indication: IDIOPATHIC THROMBOCYTOPENIC PURPURA
     Route: 058
     Dates: start: 20090127, end: 20091229
  2. PRILOSEC [Concomitant]
  3. AMLODIPINE [Concomitant]
  4. METOPROLOL TARTRATE [Concomitant]
  5. LISINOPRIL [Concomitant]
  6. LASIX [Concomitant]
  7. ZYRTEC [Concomitant]
  8. FLUOCINONIDE [Concomitant]

REACTIONS (2)
  - RASH PRURITIC [None]
  - URTICARIA [None]
